FAERS Safety Report 5195065-6 (Version None)
Quarter: 2006Q4

REPORT INFORMATION
  Report Type: 
  Country: None (occurrence: None)
  Receive Date: 20061229
  Receipt Date: 20061222
  Transmission Date: 20070319
  Serious: Yes (Other)
  Sender: FDA-Public Use
  Company Number: US-JNJFOC-20061206784

PATIENT
  Sex: Female

DRUGS (5)
  1. TYLENOL (CAPLET) [Suspect]
  2. TYLENOL (CAPLET) [Suspect]
     Indication: ARTHRITIS
     Dosage: FOR SEVERAL YEARS
  3. EFFEXOR [Concomitant]
     Indication: DEPRESSION
  4. LASIX [Concomitant]
     Indication: FLUID RETENTION
  5. POTASSIUM ACETATE [Concomitant]
     Indication: ELECTROLYTE SUBSTITUTION THERAPY

REACTIONS (3)
  - BILIRUBIN URINE [None]
  - HEPATIC ENZYME INCREASED [None]
  - INTENTIONAL DRUG MISUSE [None]
